FAERS Safety Report 7701917-2 (Version None)
Quarter: 2011Q3

REPORT INFORMATION
  Report Type: 
  Country: None (occurrence: None)
  Receive Date: 20110822
  Receipt Date: 20110815
  Transmission Date: 20111222
  Serious: Yes (Hospitalization)
  Sender: FDA-Public Use
  Company Number: US-PFIZER INC-2011187442

PATIENT

DRUGS (1)
  1. ZYVOX [Suspect]

REACTIONS (2)
  - HAEMORRHAGE [None]
  - CONFUSIONAL STATE [None]
